FAERS Safety Report 10037977 (Version 1)
Quarter: 2014Q1

REPORT INFORMATION
  Report Type: Spontaneous
  Country: DE (occurrence: None)
  Receive Date: 20140321
  Receipt Date: 20140321
  Transmission Date: 20141002
  Serious: Yes (Disabling)
  Sender: FDA-Public Use
  Company Number: 1403-0530

PATIENT
  Age: 85 Year
  Sex: Male
  Weight: 63 kg

DRUGS (4)
  1. EYLEA  (AFLIBERCEPT) (SOLUTION FOR INJECTION) (AFLIBERCEPT) [Suspect]
     Indication: AGE-RELATED MACULAR DEGENERATION
     Route: 031
     Dates: start: 20130328
  2. VEGAMOX [Concomitant]
  3. XYLOCAINE (LIDOCAINE) [Concomitant]
  4. FLOMOX (CEFCAPENE PIVOXIL HYDROCHLORIDE) [Concomitant]

REACTIONS (1)
  - Retinal haemorrhage [None]
